FAERS Safety Report 7353501-0 (Version None)
Quarter: 2011Q1

REPORT INFORMATION
  Report Type: 
  Country: None (occurrence: None)
  Receive Date: 20110315
  Receipt Date: 20110307
  Transmission Date: 20110831
  Serious: Yes (Death, Hospitalization)
  Sender: FDA-Public Use
  Company Number: US-SANOFI-AVENTIS-2011SA005273

PATIENT
  Age: 80 Year
  Sex: Female

DRUGS (2)
  1. MULTAQ [Suspect]
     Route: 065
  2. DABIGATRAN [Suspect]
     Route: 065

REACTIONS (12)
  - ASCITES [None]
  - HEPATIC ENZYME INCREASED [None]
  - APPENDICITIS [None]
  - CHOLECYSTITIS [None]
  - RENAL FAILURE CHRONIC [None]
  - HYPOTENSION [None]
  - DEHYDRATION [None]
  - DEATH [None]
  - PLEURAL EFFUSION [None]
  - PERICARDIAL EFFUSION [None]
  - INTERNATIONAL NORMALISED RATIO INCREASED [None]
  - DIVERTICULITIS [None]
